FAERS Safety Report 6458820-8 (Version None)
Quarter: 2009Q4

REPORT INFORMATION
  Report Type: 
  Country: None (occurrence: None)
  Receive Date: 20091127
  Receipt Date: 20091124
  Transmission Date: 20100525
  Serious: Yes (Hospitalization)
  Sender: FDA-Public Use
  Company Number: CH-ROCHE-670975

PATIENT
  Age: 83 Year
  Sex: Female

DRUGS (6)
  1. ROCEPHIN [Suspect]
     Indication: DIVERTICULAR PERFORATION
     Route: 048
     Dates: start: 20090709, end: 20090713
  2. FLAGYL [Suspect]
     Indication: DIVERTICULAR PERFORATION
     Route: 048
     Dates: start: 20090709, end: 20090713
  3. DAFALGAN [Suspect]
     Route: 048
     Dates: start: 20090709, end: 20090713
  4. NITRENDIPINE [Concomitant]
     Indication: HYPERTENSION
  5. CIPROFLOXACIN [Concomitant]
     Indication: DIVERTICULITIS
     Dates: start: 20090707, end: 20090708
  6. MEFENAMIC ACID [Concomitant]
     Dosage: (TABELTS?)

REACTIONS (1)
  - HEPATOCELLULAR INJURY [None]
